FAERS Safety Report 7001873-9 (Version None)
Quarter: 2010Q3

REPORT INFORMATION
  Report Type: 
  Country: None (occurrence: None)
  Receive Date: 20100920
  Receipt Date: 20100915
  Transmission Date: 20110219
  Serious: Yes (Hospitalization, Other)
  Sender: FDA-Public Use
  Company Number: US-MERCK-1004USA03498

PATIENT
  Age: 65 Year
  Sex: Female
  Weight: 45 kg

DRUGS (5)
  1. FOSAMAX [Suspect]
     Indication: OSTEOPOROSIS
     Route: 048
     Dates: start: 20000101, end: 20080201
  2. VIVELLE [Concomitant]
     Indication: HORMONE REPLACEMENT THERAPY
     Route: 065
     Dates: start: 20000101, end: 20071201
  3. HORMONES (UNSPECIFIED) [Concomitant]
     Indication: HORMONE REPLACEMENT THERAPY
     Route: 065
     Dates: start: 19970101, end: 20000101
  4. SYNTHROID [Concomitant]
     Indication: HYPOTHYROIDISM
     Route: 065
  5. ACTONEL [Suspect]
     Indication: OSTEOPOROSIS
     Route: 065
     Dates: start: 20080101, end: 20080101

REACTIONS (22)
  - ABSCESS [None]
  - BLOOD CHOLESTEROL INCREASED [None]
  - BREAST CANCER RECURRENT [None]
  - CERUMEN IMPACTION [None]
  - DENTAL CARIES [None]
  - DRY MOUTH [None]
  - DYSGEUSIA [None]
  - EXOSTOSIS [None]
  - GASTROOESOPHAGEAL REFLUX DISEASE [None]
  - HIP FRACTURE [None]
  - HOT FLUSH [None]
  - INAPPROPRIATE SCHEDULE OF DRUG ADMINISTRATION [None]
  - MOUTH ULCERATION [None]
  - ORAL DISORDER [None]
  - ORAL TORUS [None]
  - OSTEONECROSIS OF JAW [None]
  - OTITIS EXTERNA [None]
  - SIALOADENITIS [None]
  - SINUSITIS [None]
  - TONGUE ULCERATION [None]
  - TOOTH DEPOSIT [None]
  - TOOTH FRACTURE [None]
